FAERS Safety Report 4822105-3 (Version None)
Quarter: 2005Q4

REPORT INFORMATION
  Report Type: 
  Country: None (occurrence: None)
  Receive Date: 20051103
  Receipt Date: 20051017
  Transmission Date: 20060501
  Serious: Yes (Hospitalization)
  Sender: FDA-Public Use
  Company Number: JP_030200419

PATIENT
  Age: 65 Year
  Sex: Male
  Weight: 48 kg

DRUGS (3)
  1. GEMZAR [Suspect]
     Indication: PANCREATIC CARCINOMA STAGE IV
     Dosage: 1400 MG
     Dates: start: 20021209, end: 20030120
  2. SUCRALFATE [Concomitant]
  3. ZOLPIDEM TARTRATE [Concomitant]

REACTIONS (2)
  - CARDIOMEGALY [None]
  - INTERSTITIAL LUNG DISEASE [None]
